FAERS Safety Report 7245708-8 (Version None)
Quarter: 2011Q1

REPORT INFORMATION
  Report Type: 
  Country: None (occurrence: None)
  Receive Date: 20110126
  Receipt Date: 20110114
  Transmission Date: 20110831
  Serious: Yes (Death, Other)
  Sender: FDA-Public Use
  Company Number: JP-BAYER-201014327BYL

PATIENT
  Sex: Male
  Weight: 57 kg

DRUGS (11)
  1. ZEFIX [Concomitant]
     Dosage: DAILY DOSE 100 MG
     Route: 048
  2. LIVACT [Concomitant]
     Dosage: DAILY DOSE 12.45 G
     Route: 048
  3. URSO 250 [Concomitant]
     Indication: LIVER DISORDER
     Dosage: DAILY DOSE 600 MG
     Route: 048
  4. NEXAVAR [Suspect]
     Dosage: 400 MG, QOD
     Dates: start: 20100301, end: 20100315
  5. LASIX [Concomitant]
     Dosage: DAILY DOSE 20 MG
     Route: 048
  6. ALDACTONE [Concomitant]
     Dosage: DAILY DOSE 25 MG
     Route: 048
  7. AMINOLEBAN EN [Concomitant]
     Dosage: DAILY DOSE 150 G
     Route: 048
  8. HEPSERA [Concomitant]
     Dosage: DAILY DOSE 10 MG
     Route: 048
  9. LANSOPRAZOLE [Concomitant]
     Indication: GASTRITIS PROPHYLAXIS
     Dosage: DAILY DOSE 30 MG
     Route: 048
  10. NEXAVAR [Suspect]
     Indication: HEPATIC NEOPLASM MALIGNANT
     Dosage: 400 MG, BID
     Route: 048
     Dates: start: 20100215, end: 20100221
  11. NEXAVAR [Suspect]
     Dosage: 400 MG, QD
     Dates: start: 20100222, end: 20100228

REACTIONS (2)
  - LIVER DISORDER [None]
  - OESOPHAGEAL VARICES HAEMORRHAGE [None]
